FAERS Safety Report 23377715 (Version 2)
Quarter: 2024Q1

REPORT INFORMATION
  Report Type: Spontaneous
  Country: IT (occurrence: IT)
  Receive Date: 20240108
  Receipt Date: 20240119
  Transmission Date: 20240409
  Serious: Yes (Hospitalization)
  Sender: FDA-Public Use
  Company Number: None

PATIENT
  Age: 55 Year
  Sex: Female

DRUGS (4)
  1. THIOCOLCHICOSIDE [Suspect]
     Active Substance: THIOCOLCHICOSIDE
     Indication: Sciatica
     Dosage: 1 DF, 1 TOTAL
     Route: 030
     Dates: start: 20231212, end: 20231212
  2. DEXAMETHASONE [Suspect]
     Active Substance: DEXAMETHASONE
     Indication: Sciatica
     Dosage: 1 DF, 1 TOTAL
     Route: 030
     Dates: start: 20231212, end: 20231212
  3. VOLTAREN [Suspect]
     Active Substance: DICLOFENAC SODIUM
     Indication: Sciatica
     Dosage: 1 DF, 1 TOTAL
     Route: 030
     Dates: start: 20231212, end: 20231212
  4. VOLTAREN [Suspect]
     Active Substance: DICLOFENAC SODIUM
     Indication: Sciatica
     Dosage: 1 DF, 1 TOTAL
     Route: 030
     Dates: start: 20231212, end: 20231212

REACTIONS (3)
  - Throat tightness [Recovered/Resolved]
  - Blood pressure increased [Recovered/Resolved]
  - Palpitations [Recovered/Resolved]

NARRATIVE: CASE EVENT DATE: 20231213
